FAERS Safety Report 7362550-8 (Version None)
Quarter: 2011Q1

REPORT INFORMATION
  Report Type: 
  Country: None (occurrence: None)
  Receive Date: 20110318
  Receipt Date: 20110316
  Transmission Date: 20110831
  Serious: Yes (Hospitalization)
  Sender: FDA-Public Use
  Company Number: FR-AMGEN-FRASP2011014361

PATIENT
  Age: 70 Year
  Sex: Male

DRUGS (1)
  1. NPLATE [Suspect]
     Indication: THROMBOCYTOPENIC PURPURA

REACTIONS (4)
  - HYPOXIA [None]
  - HYPOCAPNIA [None]
  - PYREXIA [None]
  - PULMONARY FIBROSIS [None]
